FAERS Safety Report 5049912-9 (Version None)
Quarter: 2006Q3

REPORT INFORMATION
  Report Type: 
  Country: None (occurrence: None)
  Receive Date: 20060706
  Receipt Date: 20060626
  Transmission Date: 20061208
  Serious: Yes (Other)
  Sender: FDA-Public Use
  Company Number: 007884

PATIENT
  Age: 54 Year
  Sex: Female

DRUGS (4)
  1. MEDROXYPROGESTERONE ACETATE [Suspect]
     Dosage: ORAL
     Route: 048
     Dates: start: 20000101, end: 20031201
  2. PREMPRO [Suspect]
     Dosage: ORAL
     Route: 048
     Dates: start: 20000101, end: 20031201
  3. PREMPHASE (PREMARIN;CYCRIN 14/14) [Suspect]
     Dosage: ORAL
     Route: 048
     Dates: start: 20000101, end: 20031201
  4. PROVERA [Suspect]
     Dosage: ORAL
     Route: 048
     Dates: start: 20000101, end: 20031201

REACTIONS (1)
  - BREAST CANCER [None]
